FAERS Safety Report 4801997-8 (Version None)
Quarter: 2005Q4

REPORT INFORMATION
  Report Type: 
  Country: None (occurrence: None)
  Receive Date: 20051018
  Receipt Date: 20050420
  Transmission Date: 20060501
  Serious: Yes (Hospitalization)
  Sender: FDA-Public Use
  Company Number: US-MERCK-0504USA03948

PATIENT
  Age: 67 Year
  Sex: Male
  Weight: 85 kg

DRUGS (10)
  1. VIOXX [Suspect]
     Indication: ARTHRITIS
     Route: 048
     Dates: start: 20000612, end: 20011113
  2. VIOXX [Suspect]
     Route: 048
     Dates: start: 20000612, end: 20011113
  3. VIOXX [Suspect]
     Route: 048
     Dates: start: 20011101, end: 20040101
  4. VIOXX [Suspect]
     Route: 048
     Dates: start: 20011101, end: 20040101
  5. VIOXX [Suspect]
     Indication: OSTEOARTHRITIS
     Route: 048
     Dates: start: 20000612, end: 20011113
  6. VIOXX [Suspect]
     Route: 048
     Dates: start: 20000612, end: 20011113
  7. VIOXX [Suspect]
     Route: 048
     Dates: start: 20011101, end: 20040101
  8. VIOXX [Suspect]
     Route: 048
     Dates: start: 20011101, end: 20040101
  9. PRILOSEC [Concomitant]
     Route: 065
  10. HYTRIN [Concomitant]
     Route: 065

REACTIONS (18)
  - ACUTE MYOCARDIAL INFARCTION [None]
  - BREATH SOUNDS ABNORMAL [None]
  - CHEST PAIN [None]
  - CONSTIPATION [None]
  - CORONARY ARTERY DISEASE [None]
  - DIARRHOEA [None]
  - FOOD POISONING [None]
  - GALLBLADDER DISORDER [None]
  - GASTROENTERITIS [None]
  - HIATUS HERNIA [None]
  - HYPERLIPIDAEMIA [None]
  - HYPERPLASIA [None]
  - INJURY [None]
  - MUSCLE SPASMS [None]
  - MYALGIA [None]
  - OEDEMA PERIPHERAL [None]
  - OESOPHAGITIS [None]
  - ORTHOSTATIC HYPOTENSION [None]
